FAERS Safety Report 4479700-3 (Version None)
Quarter: 2004Q4

REPORT INFORMATION
  Report Type: 
  Country: None (occurrence: None)
  Receive Date: 20041020
  Receipt Date: 20041013
  Transmission Date: 20050328
  Serious: Yes (Other)
  Sender: FDA-Public Use
  Company Number: US-JNJFOC-20041004509

PATIENT
  Age: 51 Year
  Sex: Female
  Weight: 52.16 kg

DRUGS (1)
  1. TOPAMAX [Suspect]
     Indication: MIGRAINE PROPHYLAXIS
     Route: 049

REACTIONS (5)
  - ASTHENIA [None]
  - BLEPHAROSPASM [None]
  - CAROTID ARTERY OCCLUSION [None]
  - DYSGEUSIA [None]
  - PARAESTHESIA [None]
